FAERS Safety Report 6960842-5 (Version None)
Quarter: 2010Q3

REPORT INFORMATION
  Report Type: 
  Country: None (occurrence: None)
  Receive Date: 20100901
  Receipt Date: 20100824
  Transmission Date: 20110219
  Serious: Yes (Death)
  Sender: FDA-Public Use
  Company Number: AT-ROCHE-723246

PATIENT
  Sex: Female
  Weight: 54 kg

DRUGS (2)
  1. HERCEPTIN [Suspect]
     Route: 042
     Dates: start: 20100721
  2. XELODA [Suspect]
     Dosage: DOSE: 3000 (UNITS UNKNOWN)
     Route: 048
     Dates: start: 20100721, end: 20100804

REACTIONS (1)
  - NEUROTOXICITY [None]
